FAERS Safety Report 6024975-2 (Version None)
Quarter: 2008Q4

REPORT INFORMATION
  Report Type: 
  Country: None (occurrence: None)
  Receive Date: 20081231
  Receipt Date: 20081222
  Transmission Date: 20090506
  Serious: Yes (Disabling, Other)
  Sender: FDA-Public Use
  Company Number: GB-PFIZER INC-2008159141

PATIENT

DRUGS (5)
  1. CHAMPIX [Suspect]
     Indication: SMOKING CESSATION THERAPY
     Dosage: 1 MG, 2X/DAY
     Route: 048
     Dates: start: 20081114, end: 20081128
  2. CHEMOTHERAPY NOS [Concomitant]
  3. ACETAMINOPHEN W/ CODEINE [Concomitant]
     Route: 048
  4. THERAPEUTIC RADIOPHARMACEUTICALS [Concomitant]
  5. TRAMADOL [Concomitant]
     Route: 048

REACTIONS (1)
  - MELAENA [None]
